FAERS Safety Report 5181508-0 (Version None)
Quarter: 2006Q4

REPORT INFORMATION
  Report Type: 
  Country: None (occurrence: None)
  Receive Date: 20061220
  Receipt Date: 20060124
  Transmission Date: 20070319
  Serious: No
  Sender: FDA-Public Use
  Company Number: US-GLAXOSMITHKLINE-A0590664A

PATIENT
  Age: 48 Year
  Sex: Female

DRUGS (2)
  1. COMMIT [Suspect]
     Dates: start: 20060123, end: 20060123
  2. NICODERM CQ [Suspect]

REACTIONS (4)
  - APPLICATION SITE IRRITATION [None]
  - APPLICATION SITE VESICLES [None]
  - PALLOR [None]
  - VOMITING [None]
